FAERS Safety Report 5337522-5 (Version None)
Quarter: 2007Q2

REPORT INFORMATION
  Report Type: 
  Country: None (occurrence: None)
  Receive Date: 20070529
  Receipt Date: 20070523
  Transmission Date: 20071010
  Serious: Yes (Death, Other)
  Sender: FDA-Public Use
  Company Number: US-AMGEN-US208170

PATIENT
  Sex: Female
  Weight: 55.8 kg

DRUGS (5)
  1. ENBREL [Suspect]
     Indication: RHEUMATOID ARTHRITIS
     Route: 058
     Dates: start: 20040601
  2. METHOTREXATE [Concomitant]
     Route: 048
     Dates: start: 20000101, end: 20070501
  3. AZULFIDINE [Concomitant]
     Route: 048
     Dates: start: 20000101, end: 20070501
  4. SALSALATE [Concomitant]
     Route: 065
     Dates: start: 20000101, end: 20070501
  5. SINGULAIR [Concomitant]
     Route: 065
     Dates: start: 20000101, end: 20070501

REACTIONS (2)
  - LUNG CARCINOMA CELL TYPE UNSPECIFIED RECURRENT [None]
  - MUSCULOSKELETAL STIFFNESS [None]
